FAERS Safety Report 5128428-5 (Version None)
Quarter: 2006Q4

REPORT INFORMATION
  Report Type: 
  Country: None (occurrence: None)
  Receive Date: 20061006
  Receipt Date: 20060327
  Transmission Date: 20070319
  Serious: Yes (Other)
  Sender: FDA-Public Use
  Company Number: 200610095BBE

PATIENT
  Sex: Female

DRUGS (1)
  1. HYPRHO-D [Suspect]
     Indication: PREGNANCY

REACTIONS (2)
  - DRUG EXPOSURE DURING PREGNANCY [None]
  - EXPOSURE TO TOXIC AGENT [None]
